FAERS Safety Report 22650204 (Version 1)
Quarter: 2023Q2

REPORT INFORMATION
  Report Type: Spontaneous
  Country: US (occurrence: US)
  Receive Date: 20230628
  Receipt Date: 20230628
  Transmission Date: 20230722
  Serious: Yes (Life-Threatening)
  Sender: FDA-Public Use
  Company Number: US-PFIZER INC-202300229518

PATIENT
  Age: 12 Year
  Sex: Female

DRUGS (7)
  1. AMINOCAPROIC ACID [Suspect]
     Active Substance: AMINOCAPROIC ACID
     Indication: Mucosal haemorrhage
     Dosage: 6 G, 4X/DAY (EVERY 6 HOURS)
     Route: 042
  2. AMINOCAPROIC ACID [Suspect]
     Active Substance: AMINOCAPROIC ACID
     Indication: Thrombocytopenia
     Dosage: 4-36 G/DAY FOR 108 DAYS FOR A CUMULATIVE DOSE OF 2066 G
  3. CYCLOSPORINE [Suspect]
     Active Substance: CYCLOSPORINE
     Indication: Thrombocytopenia
     Dosage: UNK
  4. DANAZOL [Suspect]
     Active Substance: DANAZOL
     Indication: Thrombocytopenia
     Dosage: UNK
  5. WINRHO [Suspect]
     Active Substance: HUMAN RHO(D) IMMUNE GLOBULIN
     Indication: Thrombocytopenia
     Dosage: UNK
  6. EQUINE THYMOCYTE IMMUNE GLOBULIN [Suspect]
     Active Substance: EQUINE THYMOCYTE IMMUNE GLOBULIN
     Indication: Thrombocytopenia
     Dosage: UNK
  7. VINCRISTINE [Concomitant]
     Active Substance: VINCRISTINE
     Indication: Thrombocytopenia
     Dosage: UNK

REACTIONS (1)
  - Drug ineffective [Recovered/Resolved]
